FAERS Safety Report 23630853 (Version 1)
Quarter: 2024Q1

REPORT INFORMATION
  Report Type: Spontaneous
  Country: DK (occurrence: DK)
  Receive Date: 20240314
  Receipt Date: 20240314
  Transmission Date: 20240410
  Serious: Yes (Hospitalization, Other)
  Sender: FDA-Public Use
  Company Number: DK-VALIDUS PHARMACEUTICALS LLC-DK-VDP-2024-019155

PATIENT

DRUGS (6)
  1. FUROSEMIDE [Suspect]
     Active Substance: FUROSEMIDE
     Indication: Oedema due to cardiac disease
     Dosage: STRENGTH: 40 MG. DOSE:80 MG IN THE MORNING AND 40 MG IN THE EVENING
     Route: 048
     Dates: start: 20240126, end: 20240206
  2. FUROSEMIDE [Suspect]
     Active Substance: FUROSEMIDE
     Indication: Oedema due to cardiac disease
     Dosage: 40 MG, BID
     Route: 042
     Dates: start: 20240125, end: 202401
  3. HYDROXOCOBALAMIN ALTERNOVA [Concomitant]
     Indication: Vitamin B12 deficiency
     Dosage: UNK
     Route: 065
     Dates: start: 20180917
  4. SERETIDE [Concomitant]
     Active Substance: FLUTICASONE PROPIONATE\SALMETEROL XINAFOATE
     Indication: Lung disorder
     Dosage: UNK
     Route: 065
     Dates: start: 20210920
  5. FINASTERIDE [Concomitant]
     Active Substance: FINASTERIDE
     Indication: Benign prostatic hyperplasia
     Dosage: UNK
     Route: 065
     Dates: start: 20190720
  6. OLOPATADIN MICRO LABS [Concomitant]
     Indication: Conjunctivitis allergic
     Dosage: UNK
     Route: 065
     Dates: start: 20190719

REACTIONS (5)
  - Acute kidney injury [Unknown]
  - Dehydration [Unknown]
  - Loss of consciousness [Unknown]
  - Fall [Unknown]
  - Orthostatic hypotension [Unknown]

NARRATIVE: CASE EVENT DATE: 20240201
